FAERS Safety Report 7055076-2 (Version None)
Quarter: 2010Q4

REPORT INFORMATION
  Report Type: 
  Country: None (occurrence: None)
  Receive Date: 20101021
  Receipt Date: 20071018
  Transmission Date: 20110411
  Serious: Yes (Disabling)
  Sender: FDA-Public Use
  Company Number: PT-BAYER-201042692GPV

PATIENT
  Sex: Female

DRUGS (1)
  1. BETAFERON [Suspect]
     Indication: MULTIPLE SCLEROSIS
     Route: 058
     Dates: start: 20070101

REACTIONS (5)
  - ABASIA [None]
  - ARTHRALGIA [None]
  - DISEASE PROGRESSION [None]
  - HYPOAESTHESIA [None]
  - PAIN IN EXTREMITY [None]
